FAERS Safety Report 7571950-2 (Version None)
Quarter: 2011Q2

REPORT INFORMATION
  Report Type: 
  Country: None (occurrence: None)
  Receive Date: 20110624
  Receipt Date: 20110323
  Transmission Date: 20111010
  Serious: No
  Sender: FDA-Public Use
  Company Number: A0919544A

PATIENT
  Age: 52 Year
  Sex: Female

DRUGS (7)
  1. CELEBREX [Concomitant]
  2. ADVAIR DISKUS 100/50 [Concomitant]
  3. PATANASE [Concomitant]
  4. VERAMYST [Suspect]
     Dosage: 2SPR PER DAY
     Route: 045
     Dates: start: 20110315, end: 20110322
  5. COUMADIN [Concomitant]
  6. SINGULAIR [Concomitant]
  7. EFFEXOR XR [Concomitant]

REACTIONS (5)
  - DYSPNOEA [None]
  - ADVERSE DRUG REACTION [None]
  - CHEST DISCOMFORT [None]
  - INTERNATIONAL NORMALISED RATIO INCREASED [None]
  - DIZZINESS [None]
